FAERS Safety Report 6870214-X (Version None)
Quarter: 2010Q3

REPORT INFORMATION
  Report Type: 
  Country: None (occurrence: None)
  Receive Date: 20100723
  Receipt Date: 20100714
  Transmission Date: 20110219
  Serious: Yes (Hospitalization)
  Sender: FDA-Public Use
  Company Number: BR-BIOGENIDEC-2009BI021843

PATIENT
  Age: 60 Year
  Sex: Female

DRUGS (6)
  1. AVONEX [Suspect]
     Indication: MULTIPLE SCLEROSIS
     Route: 030
     Dates: start: 20040101
  2. INSULIN [Concomitant]
     Indication: DIABETES MELLITUS
  3. ENALAPRIL MALEATE [Concomitant]
     Indication: HYPERTENSION
  4. METFORMIN [Concomitant]
     Indication: DIABETES MELLITUS
  5. GINKGO BILOBA [Concomitant]
  6. AESCULUS HIPPOCATANUM [Concomitant]

REACTIONS (5)
  - APPENDICITIS [None]
  - DIARRHOEA [None]
  - GALLBLADDER DISORDER [None]
  - HYPERSENSITIVITY [None]
  - INFLUENZA LIKE ILLNESS [None]
